FAERS Safety Report 5322081-3 (Version None)
Quarter: 2007Q1

REPORT INFORMATION
  Report Type: 
  Country: None (occurrence: None)
  Receive Date: 20070222
  Receipt Date: 20060922
  Transmission Date: 20070707
  Serious: Yes (Life-Threatening)
  Sender: FDA-Public Use
  Company Number: HQWYE106525SEP06

PATIENT
  Age: 60 Year
  Sex: Female

DRUGS (5)
  1. EFFEXOR [Suspect]
     Indication: DEPRESSION
     Dosage: 37.5 MG 1X PER 1 DAY; ORAL
     Route: 048
     Dates: start: 20010123
  2. GLIPIZIDE [Concomitant]
  3. METFORMIN HCL [Concomitant]
  4. TRIAMTERENE (TRIAMTERENE) [Concomitant]
  5. OXYBUTYNIN HYDROCHLORIDE (OXBUTYNIN HYDROCHLORIDE) [Concomitant]

REACTIONS (1)
  - PANCYTOPENIA [None]
